FAERS Safety Report 21314691 (Version 1)
Quarter: 2022Q3

REPORT INFORMATION
  Report Type: Spontaneous
  Country: US (occurrence: None)
  Receive Date: 20220909
  Receipt Date: 20220909
  Transmission Date: 20221027
  Serious: No
  Sender: FDA-Public Use
  Company Number: US-ARIS GLOBAL-202110-1924

PATIENT
  Sex: Female

DRUGS (18)
  1. OXERVATE [Suspect]
     Active Substance: CENEGERMIN-BKBJ
     Indication: Neurotrophic keratopathy
     Route: 047
     Dates: start: 20211019
  2. OXERVATE [Suspect]
     Active Substance: CENEGERMIN-BKBJ
     Indication: Hypoaesthesia eye
  3. PROLIA [Concomitant]
     Active Substance: DENOSUMAB
  4. TYLENOL [Concomitant]
     Active Substance: ACETAMINOPHEN
  5. ZINC-15 [Concomitant]
  6. THIAMINE HYDROCHLORIDE [Concomitant]
     Active Substance: THIAMINE HYDROCHLORIDE
  7. URSODIOL [Concomitant]
     Active Substance: URSODIOL
  8. PANTOPRAZOLE SODIUM [Concomitant]
     Active Substance: PANTOPRAZOLE SODIUM
  9. METRONIDAZOLE [Concomitant]
     Active Substance: METRONIDAZOLE
  10. MAGNESIUM [Concomitant]
     Active Substance: MAGNESIUM
  11. LOSARTAN POTASSIUM [Concomitant]
     Active Substance: LOSARTAN POTASSIUM
  12. FERROUS SULFATE [Concomitant]
     Active Substance: FERROUS SULFATE
  13. FISH OIL 100 [Concomitant]
  14. DICLOFENAC SODIUM [Concomitant]
     Active Substance: DICLOFENAC SODIUM
  15. CARVEDILOL [Concomitant]
     Active Substance: CARVEDILOL
  16. VITAMIN D3 [Concomitant]
     Active Substance: CHOLECALCIFEROL
  17. ASPIRIN [Concomitant]
     Active Substance: ASPIRIN
  18. VITAMIN C [Concomitant]
     Active Substance: ASCORBIC ACID

REACTIONS (1)
  - Accidental overdose [Unknown]
